FAERS Safety Report 7006827-4 (Version None)
Quarter: 2010Q3

REPORT INFORMATION
  Report Type: 
  Country: None (occurrence: None)
  Receive Date: 20100922
  Receipt Date: 20100913
  Transmission Date: 20110219
  Serious: No
  Sender: FDA-Public Use
  Company Number: US-BIOGENIDEC-2010BI032530

PATIENT
  Sex: Female
  Weight: 81 kg

DRUGS (1)
  1. TYSABRI [Suspect]
     Indication: MULTIPLE SCLEROSIS
     Route: 042
     Dates: start: 20090129

REACTIONS (12)
  - ATTENTION DEFICIT/HYPERACTIVITY DISORDER [None]
  - BLEPHAROSPASM [None]
  - FALL [None]
  - GAIT DISTURBANCE [None]
  - IODINE ALLERGY [None]
  - MIGRAINE [None]
  - POOR QUALITY SLEEP [None]
  - POOR VENOUS ACCESS [None]
  - THROMBOSIS IN DEVICE [None]
  - TREMOR [None]
  - VISUAL IMPAIRMENT [None]
  - VITAMIN B COMPLEX DEFICIENCY [None]
